FAERS Safety Report 4639399-X (Version None)
Quarter: 2005Q2

REPORT INFORMATION
  Report Type: 
  Country: None (occurrence: None)
  Receive Date: 20050419
  Receipt Date: 19950717
  Transmission Date: 20051028
  Serious: Yes (Hospitalization, Disabling)
  Sender: FDA-Public Use
  Company Number: AU-MERCK-94067726

PATIENT
  Age: 65 Year
  Sex: Female

DRUGS (4)
  1. INDAPAMIDE [Concomitant]
     Route: 065
  2. ENALAPRIL MALEATE [Concomitant]
     Route: 065
  3. PINDOLOL [Concomitant]
     Route: 065
  4. ZOCOR [Suspect]
     Indication: HYPERCHOLESTEROLAEMIA
     Route: 048

REACTIONS (4)
  - BLOOD CREATINE PHOSPHOKINASE INCREASED [None]
  - BURNING SENSATION [None]
  - NEUROPATHY PERIPHERAL [None]
  - POLYMYOSITIS [None]
